FAERS Safety Report 4564484-0 (Version None)
Quarter: 2005Q1

REPORT INFORMATION
  Report Type: 
  Country: None (occurrence: None)
  Receive Date: 20050128
  Receipt Date: 20050118
  Transmission Date: 20050727
  Serious: Yes (Hospitalization)
  Sender: FDA-Public Use
  Company Number: CH-BRISTOL-MYERS SQUIBB COMPANY-12828638

PATIENT
  Age: 5 Decade
  Sex: Female

DRUGS (4)
  1. DAPOTUM TABS [Suspect]
     Route: 048
     Dates: start: 20041030, end: 20041215
  2. AKINETON [Suspect]
     Route: 048
     Dates: start: 20041115
  3. HALDOL DECANOATE [Suspect]
     Route: 030
     Dates: start: 19960601, end: 20041025
  4. MELLERIL [Concomitant]
     Dosage: DOSE TAKEN IN THE EVENING.  DURATION OF THERAPY:  ^SOME MONTHS^

REACTIONS (1)
  - BLOOD PROLACTIN INCREASED [None]
